FAERS Safety Report 6659766-2 (Version None)
Quarter: 2010Q1

REPORT INFORMATION
  Report Type: 
  Country: None (occurrence: None)
  Receive Date: 20100330
  Receipt Date: 20100329
  Transmission Date: 20100710
  Serious: Yes (Other)
  Sender: FDA-Public Use
  Company Number: ES-MERCK-1003ESP00055

PATIENT
  Sex: Male

DRUGS (1)
  1. SINGULAIR [Suspect]
     Indication: ASTHMA
     Route: 048
     Dates: start: 20100205, end: 20100212

REACTIONS (2)
  - MUSCULAR WEAKNESS [None]
  - NIGHTMARE [None]
